FAERS Safety Report 18311882 (Version 1)
Quarter: 2020Q3

REPORT INFORMATION
  Report Type: Report from Study
  Country: CA (occurrence: CA)
  Receive Date: 20200925
  Receipt Date: 20200925
  Transmission Date: 20201103
  Serious: Yes (Other)
  Sender: FDA-Public Use
  Company Number: CA-ACCORD-202120

PATIENT
  Age: 35 Year
  Sex: Male
  Weight: 54 kg

DRUGS (9)
  1. CYANOCOBALAMIN. [Concomitant]
     Active Substance: CYANOCOBALAMIN
  2. CIALIS [Concomitant]
     Active Substance: TADALAFIL
  3. DOCOSAHEXAENOIC ACID/EICOSAPENTAENOIC ACID [Concomitant]
     Active Substance: DOCONEXENT\ICOSAPENT
  4. RITUXIMAB. [Interacting]
     Active Substance: RITUXIMAB
     Indication: MYOSITIS
     Route: 042
  5. LEFLUNOMIDE. [Concomitant]
     Active Substance: LEFLUNOMIDE
  6. PREDNISONE. [Concomitant]
     Active Substance: PREDNISONE
  7. ASCORBIC ACID. [Concomitant]
     Active Substance: ASCORBIC ACID
  8. MYCOPHENOLIC ACID. [Suspect]
     Active Substance: MYCOPHENOLIC ACID
     Indication: PRODUCT USED FOR UNKNOWN INDICATION
  9. HYDROXYCHLOROQUINE [Concomitant]
     Active Substance: HYDROXYCHLOROQUINE

REACTIONS (8)
  - Hypogeusia [Unknown]
  - Myalgia [Unknown]
  - Intentional product use issue [Unknown]
  - Weight decreased [Unknown]
  - Testicular microlithiasis [Unknown]
  - White blood cell count decreased [Unknown]
  - Vomiting [Unknown]
  - Drug interaction [Unknown]
